FAERS Safety Report 11968871 (Version 1)
Quarter: 2016Q1

REPORT INFORMATION
  Report Type: Spontaneous
  Country: US (occurrence: None)
  Receive Date: 20160126
  Receipt Date: 20160126
  Transmission Date: 20160526
  Serious: No
  Sender: FDA-Public Use
  Company Number: None

PATIENT
  Age: 56 Year
  Sex: Male

DRUGS (1)
  1. CELLCEPT [Suspect]
     Active Substance: MYCOPHENOLATE MOFETIL\MYCOPHENOLATE MOFETIL HYDROCHLORIDE
     Dosage: STRENGTH: 500

REACTIONS (4)
  - Peripheral swelling [None]
  - Joint swelling [None]
  - Therapeutic response decreased [None]
  - Gout [None]

NARRATIVE: CASE EVENT DATE: 20160121
